FAERS Safety Report 5232448-X (Version None)
Quarter: 2007Q1

REPORT INFORMATION
  Report Type: 
  Country: None (occurrence: None)
  Receive Date: 20070205
  Receipt Date: 20070124
  Transmission Date: 20070707
  Serious: Yes (Life-Threatening)
  Sender: FDA-Public Use
  Company Number: OMPQ-NO-0701S-0037

PATIENT
  Age: 81 Year
  Sex: Female
  Weight: 43.6 kg

DRUGS (7)
  1. OMNIPAQUE 140 [Suspect]
     Indication: THYROID CANCER
     Dosage: 80 MG, SINGLE DOSE, I.V.
     Route: 042
     Dates: start: 20070109, end: 20070109
  2. ETODOLAC (HYPEN) [Concomitant]
  3. LIPITOR [Concomitant]
  4. NORVASC [Concomitant]
  5. CANDESARTAN CILEXETIL (BLOPRESS) [Concomitant]
  6. ALFACALCIDOL (PLATIBIT) [Concomitant]
  7. CARBOCISTEINE (MUCODYNE) [Concomitant]

REACTIONS (2)
  - ANAPHYLACTOID SHOCK [None]
  - INJURY ASPHYXIATION [None]
